FAERS Safety Report 7939574-2 (Version None)
Quarter: 2011Q4

REPORT INFORMATION
  Report Type: 
  Country: None (occurrence: None)
  Receive Date: 20111125
  Receipt Date: 20111115
  Transmission Date: 20120403
  Serious: Yes (Life-Threatening, Hospitalization, Other)
  Sender: FDA-Public Use
  Company Number: GB-PFIZER INC-2006014158

PATIENT
  Age: 47 Year
  Sex: Male
  Weight: 91.6 kg

DRUGS (7)
  1. PROPRANOLOL [Suspect]
     Dosage: 10 MG, 2X/DAY
     Route: 048
     Dates: start: 20051214, end: 20060126
  2. PROZAC [Concomitant]
     Indication: DEPRESSION
     Route: 048
     Dates: start: 20050101
  3. SUNITINIB MALATE [Suspect]
     Indication: RENAL CELL CARCINOMA
     Dosage: 50 MG, 1X/DAY
     Route: 048
     Dates: start: 20060113, end: 20060125
  4. ZOPICLONE [Concomitant]
     Indication: INSOMNIA
     Dosage: UNK
     Route: 048
     Dates: start: 20050101
  5. GABAPENTIN [Concomitant]
     Indication: ABDOMINAL PAIN UPPER
     Route: 048
     Dates: start: 20051214
  6. ORAMORPH SR [Concomitant]
     Indication: ABDOMINAL PAIN UPPER
     Route: 048
     Dates: start: 20030101
  7. MORPHINE [Concomitant]
     Indication: ABDOMINAL PAIN UPPER
     Route: 048
     Dates: start: 20030101

REACTIONS (7)
  - CARDIAC ARREST [None]
  - CONVULSION [None]
  - PAIN [None]
  - VOMITING [None]
  - VENTRICULAR TACHYCARDIA [None]
  - DIARRHOEA [None]
  - TORSADE DE POINTES [None]
